FAERS Safety Report 21490477 (Version 2)
Quarter: 2022Q4

REPORT INFORMATION
  Report Type: Report from Study
  Country: DE (occurrence: DE)
  Receive Date: 20221021
  Receipt Date: 20221026
  Transmission Date: 20230113
  Serious: Yes (Hospitalization)
  Sender: FDA-Public Use
  Company Number: DE-ABBVIE-4169013

PATIENT
  Age: 39 Year
  Sex: Male

DRUGS (4)
  1. SKYRIZI [Suspect]
     Active Substance: RISANKIZUMAB-RZAA
     Indication: Product used for unknown indication
     Dosage: TIME INTERVAL: 0.33333333 MONTHS
     Route: 058
     Dates: start: 20201215
  2. PANTOPRAZOLE SODIUM [Concomitant]
     Active Substance: PANTOPRAZOLE SODIUM
     Indication: Gastrooesophageal reflux disease
     Route: 048
     Dates: start: 20150406
  3. CEFUROXIME [Concomitant]
     Active Substance: CEFUROXIME
     Indication: Epididymitis
     Route: 048
     Dates: start: 20210131, end: 20210207
  4. CEFTRIAXONE [Concomitant]
     Active Substance: CEFTRIAXONE
     Indication: Epididymitis
     Route: 042
     Dates: start: 20210126, end: 20210130

REACTIONS (1)
  - Epididymitis [Recovered/Resolved]

NARRATIVE: CASE EVENT DATE: 20210122
